FAERS Safety Report 10341072 (Version 1)
Quarter: 2014Q3

REPORT INFORMATION
  Report Type: Spontaneous
  Country: US (occurrence: US)
  Receive Date: 20140724
  Receipt Date: 20140724
  Transmission Date: 20150326
  Serious: No
  Sender: FDA-Public Use
  Company Number: US-MYLANLABS-2014S1002250

PATIENT
  Age: 54 Year
  Sex: Female

DRUGS (19)
  1. VITAMIN D [Concomitant]
     Active Substance: CHOLECALCIFEROL
     Dosage: AC
  2. LEVOTHYROXINE SODIUM TABLETS, USP [Suspect]
     Active Substance: LEVOTHYROXINE SODIUM
     Indication: HYPOTHYROIDISM
     Route: 048
     Dates: end: 20131016
  3. FISH OIL [Concomitant]
     Active Substance: FISH OIL
  4. METFORMIN [Concomitant]
     Active Substance: METFORMIN HYDROCHLORIDE
  5. LEVOTHYROXINE SODIUM TABLETS, USP [Suspect]
     Active Substance: LEVOTHYROXINE SODIUM
     Indication: HYPOTHYROIDISM
     Dates: start: 20131017
  6. CYCLOBENZAPRINE [Concomitant]
     Active Substance: CYCLOBENZAPRINE
     Dosage: 1/2 - 1 HS
  7. PROAIR HFA [Concomitant]
     Active Substance: ALBUTEROL SULFATE
     Dosage: Q 4HR PRN
     Route: 055
  8. TRAMADOL [Concomitant]
     Active Substance: TRAMADOL
     Dosage: 50MG PRN
  9. E2 [Concomitant]
     Dosage: 1/2  PRN
  10. LASIX [Concomitant]
     Active Substance: FUROSEMIDE
  11. CEPHALEXIN. [Concomitant]
     Active Substance: CEPHALEXIN
     Route: 030
  12. IBUPROFEN. [Concomitant]
     Active Substance: IBUPROFEN
  13. VALTREX [Concomitant]
     Active Substance: VALACYCLOVIR HYDROCHLORIDE
  14. FIXMYSKIN HEALING BALM VANILLA FRAGRANCE [Concomitant]
     Active Substance: HYDROCORTISONE
  15. NEXIUM [Concomitant]
     Active Substance: ESOMEPRAZOLE MAGNESIUM
  16. CELEBREX [Concomitant]
     Active Substance: CELECOXIB
  17. FIXMYSKIN HEALING BALM VANILLA FRAGRANCE [Concomitant]
     Active Substance: HYDROCORTISONE
     Dosage: Q PM
  18. WELCHOL [Concomitant]
     Active Substance: COLESEVELAM HYDROCHLORIDE
  19. PHOSPHATE /01053101/ [Concomitant]

REACTIONS (4)
  - Staphylococcus test [Recovering/Resolving]
  - Insomnia [Recovering/Resolving]
  - Subcutaneous abscess [Recovering/Resolving]
  - Pruritus [Recovering/Resolving]
